FAERS Safety Report 15806200 (Version 9)
Quarter: 2025Q2

REPORT INFORMATION
  Report Type: Spontaneous
  Country: US (occurrence: US)
  Receive Date: 20190110
  Receipt Date: 20250421
  Transmission Date: 20250716
  Serious: Yes (Hospitalization, Other)
  Sender: PFIZER
  Company Number: US-PFIZER INC-2019010742

PATIENT
  Age: 79 Year
  Sex: Female

DRUGS (5)
  1. SOMAVERT [Suspect]
     Active Substance: PEGVISOMANT
     Indication: Acromegaly
     Dosage: 10 MG, ONCE WEEKLY
     Route: 058
  2. SOMAVERT [Suspect]
     Active Substance: PEGVISOMANT
     Route: 058
     Dates: start: 2006
  3. SOMAVERT [Suspect]
     Active Substance: PEGVISOMANT
     Dosage: 10 MG, 2X/WEEK
     Route: 058
     Dates: start: 20181202
  4. SOMAVERT [Suspect]
     Active Substance: PEGVISOMANT
     Route: 058
     Dates: start: 20200201
  5. SOMAVERT [Suspect]
     Active Substance: PEGVISOMANT
     Dosage: 10 MG, DAILY
     Route: 058

REACTIONS (15)
  - Coccidioidomycosis [Unknown]
  - Pneumonia [Unknown]
  - Hip fracture [Unknown]
  - Fatigue [Not Recovered/Not Resolved]
  - Arthralgia [Not Recovered/Not Resolved]
  - Joint stiffness [Not Recovered/Not Resolved]
  - Movement disorder [Unknown]
  - Limb mass [Unknown]
  - Insulin-like growth factor increased [Recovered/Resolved]
  - Axillary mass [Not Recovered/Not Resolved]
  - Pain [Recovered/Resolved]
  - Toothache [Recovered/Resolved]
  - Off label use [Unknown]
  - Inappropriate schedule of product administration [Unknown]
  - Incorrect dose administered [Unknown]

NARRATIVE: CASE EVENT DATE: 20181101
